FAERS Safety Report 16773357 (Version 1)
Quarter: 2019Q3

REPORT INFORMATION
  Report Type: Spontaneous
  Country: US (occurrence: US)
  Receive Date: 20190904
  Receipt Date: 20190904
  Transmission Date: 20191005
  Serious: Yes (Hospitalization)
  Sender: FDA-Public Use
  Company Number: None

PATIENT

DRUGS (1)
  1. OLANZAPINE 20MG DISPERSIBLE TABLETS [Suspect]
     Active Substance: OLANZAPINE

REACTIONS (1)
  - Hospitalisation [None]
